FAERS Safety Report 8538167-6 (Version None)
Quarter: 2012Q3

REPORT INFORMATION
  Report Type: 
  Country: None (occurrence: None)
  Receive Date: 20120726
  Receipt Date: 20120718
  Transmission Date: 20120928
  Serious: No
  Sender: FDA-Public Use
  Company Number: US-009507513-2012SP031286

PATIENT

DRUGS (1)
  1. IMPLANON [Suspect]
     Route: 058
     Dates: start: 20120224

REACTIONS (1)
  - UNINTENDED PREGNANCY [None]
